FAERS Safety Report 25152138 (Version 2)
Quarter: 2025Q2

REPORT INFORMATION
  Report Type: Spontaneous
  Country: US (occurrence: US)
  Receive Date: 20250402
  Receipt Date: 20250609
  Transmission Date: 20250717
  Serious: No
  Sender: SANOFI AVENTIS
  Company Number: US-SANOFI-02460942

PATIENT
  Age: 75 Year
  Sex: Male
  Weight: 94 kg

DRUGS (33)
  1. KEVZARA [Suspect]
     Active Substance: SARILUMAB
     Indication: Polymyalgia rheumatica
     Dosage: 200 MG, QOW
     Route: 058
     Dates: start: 20241127, end: 202412
  2. KEVZARA [Suspect]
     Active Substance: SARILUMAB
     Indication: Spinal fracture
     Dosage: 200 MG, QOW
     Route: 058
  3. KEVZARA [Suspect]
     Active Substance: SARILUMAB
     Indication: Acquired ATTR amyloidosis
  4. KEVZARA [Suspect]
     Active Substance: SARILUMAB
     Indication: B-cell lymphoma
  5. KEVZARA [Suspect]
     Active Substance: SARILUMAB
     Indication: Hypogammaglobulinaemia
  6. VYNDAQEL [Concomitant]
     Active Substance: TAFAMIDIS MEGLUMINE
  7. EVENITY [Concomitant]
     Active Substance: ROMOSOZUMAB-AQQG
  8. SODIUM CHLORIDE [Concomitant]
     Active Substance: SODIUM CHLORIDE
  9. LIDOCAINE [Concomitant]
     Active Substance: LIDOCAINE
  10. EPINEPHRINE [EPINEPHRINE HYDROCHLORIDE] [Concomitant]
  11. DIPHENHYDRAMINE HYDROCHLORIDE [Concomitant]
     Active Substance: DIPHENHYDRAMINE HYDROCHLORIDE
  12. ACETAMINOPHEN [Concomitant]
     Active Substance: ACETAMINOPHEN
  13. GAMMAGARD S/D [Concomitant]
     Active Substance: HUMAN IMMUNOGLOBULIN G
  14. PREDNISONE [Concomitant]
     Active Substance: PREDNISONE
  15. PRILOSEC OTC [Concomitant]
     Active Substance: OMEPRAZOLE MAGNESIUM
  16. TORSEMIDE [Concomitant]
     Active Substance: TORSEMIDE
  17. FIBERCON [Concomitant]
     Active Substance: CALCIUM POLYCARBOPHIL
  18. MELATONIN [Concomitant]
     Active Substance: MELATONIN
  19. VITAMIN D3 [Concomitant]
     Active Substance: CHOLECALCIFEROL
  20. VITAMIN B12 [Concomitant]
     Active Substance: CYANOCOBALAMIN
  21. MEDICAL FOOD [Concomitant]
     Active Substance: MEDICAL FOOD
  22. LEVOXYL [Concomitant]
     Active Substance: LEVOTHYROXINE SODIUM
  23. ALBUTEROL SULFATE [Concomitant]
     Active Substance: ALBUTEROL SULFATE
  24. BENADRYL [Concomitant]
     Active Substance: DIPHENHYDRAMINE HYDROCHLORIDE
  25. METOPROLOL TARTRATE [Concomitant]
     Active Substance: METOPROLOL TARTRATE
  26. BACLOFEN\CYCLOBENZAPRINE\DICLOFENAC\GABAPENTIN\TETRACAINE [Concomitant]
     Active Substance: BACLOFEN\CYCLOBENZAPRINE\DICLOFENAC\GABAPENTIN\TETRACAINE
  27. TYLENOL EXTRA STRENGTH [Concomitant]
     Active Substance: ACETAMINOPHEN
  28. RETINOL [Concomitant]
     Active Substance: RETINOL
  29. ELIQUIS [Concomitant]
     Active Substance: APIXABAN
  30. AMIODARONE HYDROCHLORIDE [Concomitant]
     Active Substance: AMIODARONE HYDROCHLORIDE
  31. HIZENTRA [Concomitant]
     Active Substance: HUMAN IMMUNOGLOBULIN G
  32. HIZENTRA [Concomitant]
     Active Substance: HUMAN IMMUNOGLOBULIN G
  33. HIZENTRA [Concomitant]
     Active Substance: HUMAN IMMUNOGLOBULIN G

REACTIONS (3)
  - Pyrexia [Unknown]
  - Intercepted product storage error [Unknown]
  - Product use in unapproved indication [Unknown]

NARRATIVE: CASE EVENT DATE: 20241127
